FAERS Safety Report 5206074-2 (Version None)
Quarter: 2007Q1

REPORT INFORMATION
  Report Type: 
  Country: None (occurrence: None)
  Receive Date: 20070108
  Receipt Date: 20061228
  Transmission Date: 20070707
  Serious: No
  Sender: FDA-Public Use
  Company Number: 06H-163-0311543-00

PATIENT

DRUGS (1)
  1. LACTATED RINGERS INJECTION IN FLEXIBLE CONTAINERS (LACTATED RINGERS IN [Suspect]
     Dosage: TRANSPLACENTAL
     Route: 064
     Dates: start: 20060101, end: 20060101

REACTIONS (3)
  - BRADYCARDIA FOETAL [None]
  - CAESAREAN SECTION [None]
  - DRUG EXPOSURE DURING PREGNANCY [None]
